FAERS Safety Report 9932846 (Version 1)
Quarter: 2014Q1

REPORT INFORMATION
  Report Type: Spontaneous
  Country: US (occurrence: US)
  Receive Date: 20140228
  Receipt Date: 20140228
  Transmission Date: 20141002
  Serious: No
  Sender: FDA-Public Use
  Company Number: US-ABBVIE-13P-163-1080461-00

PATIENT
  Age: 57 Year
  Sex: Male
  Weight: 74 kg

DRUGS (6)
  1. ANDROGEL [Suspect]
     Indication: BLOOD TESTOSTERONE DECREASED
     Route: 061
  2. FENTANYL [Suspect]
     Indication: PAIN
     Dosage: PATCHES
     Route: 061
     Dates: end: 201304
  3. OPANA [Concomitant]
     Indication: SPINAL OSTEOARTHRITIS
  4. OPANA [Concomitant]
     Indication: PAIN
  5. SOMA [Concomitant]
     Indication: SPINAL OSTEOARTHRITIS
  6. LISINOPRIL [Concomitant]
     Indication: HYPERTENSION

REACTIONS (2)
  - Skin irritation [Recovering/Resolving]
  - Application site pain [Recovering/Resolving]
